FAERS Safety Report 7494723-8 (Version None)
Quarter: 2011Q2

REPORT INFORMATION
  Report Type: 
  Country: None (occurrence: None)
  Receive Date: 20110520
  Receipt Date: 20110511
  Transmission Date: 20111010
  Serious: Yes (Hospitalization)
  Sender: FDA-Public Use
  Company Number: FR-ASTRAZENECA-2011SE28907

PATIENT
  Age: 12 Year
  Sex: Male
  Weight: 35 kg

DRUGS (12)
  1. NAPROXEN [Suspect]
     Route: 048
     Dates: start: 20100427, end: 20101231
  2. VALPROATE SODIUM [Suspect]
     Indication: CONVULSION
     Route: 048
     Dates: start: 20101127
  3. SODIUM BICARBONATES [Concomitant]
     Route: 048
  4. ADVIL LIQUI-GELS [Suspect]
     Indication: ARTHRALGIA
     Route: 048
     Dates: start: 20090901
  5. PHOSPHONEUROS [Concomitant]
     Route: 048
  6. CLARITHROMYCIN [Suspect]
     Indication: HELICOBACTER INFECTION
     Route: 047
     Dates: start: 20110207, end: 20110207
  7. AMOXICILLIN [Suspect]
     Indication: HELICOBACTER INFECTION
     Route: 048
     Dates: start: 20110207, end: 20110214
  8. UVESTEROL VITAMINES A D E C [Concomitant]
     Route: 048
     Dates: end: 20110216
  9. NEXIUM [Suspect]
     Indication: GASTRIC ULCER
     Route: 048
     Dates: start: 20110207
  10. ADVIL LIQUI-GELS [Suspect]
     Route: 048
     Dates: start: 20101231, end: 20110215
  11. NAPROXEN [Suspect]
     Indication: ARTHRITIS
     Route: 048
     Dates: start: 20091101, end: 20091130
  12. HEXATRIONE [Concomitant]
     Indication: ARTHRALGIA
     Route: 014

REACTIONS (1)
  - RENAL FAILURE ACUTE [None]
